FAERS Safety Report 24113273 (Version 2)
Quarter: 2024Q3

REPORT INFORMATION
  Report Type: Spontaneous
  Country: CH (occurrence: CH)
  Receive Date: 20240719
  Receipt Date: 20240806
  Transmission Date: 20241016
  Serious: Yes (Death, Other)
  Sender: ELI LILLY AND CO
  Company Number: CH-ELI_LILLY_AND_COMPANY-CH202407010155

PATIENT
  Age: 73 Year
  Sex: Male

DRUGS (14)
  1. ALIMTA [Suspect]
     Active Substance: PEMETREXED DISODIUM
     Indication: Product used for unknown indication
     Dosage: UNK, UNKNOWN
     Route: 065
     Dates: start: 20201105, end: 20210218
  2. ALIMTA [Suspect]
     Active Substance: PEMETREXED DISODIUM
     Dosage: UNK, UNKNOWN
     Route: 065
     Dates: start: 20210218, end: 20221108
  3. GEMCITABINE HYDROCHLORIDE [Suspect]
     Active Substance: GEMCITABINE HYDROCHLORIDE
     Indication: Product used for unknown indication
     Dosage: UNK, UNKNOWN
     Route: 065
     Dates: start: 20210810, end: 20211130
  4. ATEZOLIZUMAB [Suspect]
     Active Substance: ATEZOLIZUMAB
     Indication: Product used for unknown indication
     Dosage: UNK, UNKNOWN
     Route: 065
     Dates: start: 20210810, end: 20211130
  5. BEVACIZUMAB [Concomitant]
     Active Substance: BEVACIZUMAB
     Indication: Product used for unknown indication
     Dosage: UNK, UNKNOWN
     Route: 065
     Dates: start: 20201105, end: 20210218
  6. CISPLATIN [Concomitant]
     Active Substance: CISPLATIN
     Indication: Product used for unknown indication
     Dosage: UNK, UNKNOWN
     Dates: start: 20201105, end: 20210218
  7. VINORELBINE [Concomitant]
     Active Substance: VINORELBINE TARTRATE
     Indication: Product used for unknown indication
     Dosage: UNK, UNKNOWN
     Route: 065
     Dates: start: 20211214, end: 20220830
  8. XARELTO [Concomitant]
     Active Substance: RIVAROXABAN
     Indication: Product used for unknown indication
     Dosage: UNK, UNKNOWN
     Dates: start: 20220208
  9. SODIUM PICOSULFATE [Concomitant]
     Active Substance: SODIUM PICOSULFATE
     Indication: Product used for unknown indication
     Dosage: UNK, UNKNOWN
  10. MAGNESIUM CHLORIDE [Concomitant]
     Active Substance: MAGNESIUM CHLORIDE
     Indication: Product used for unknown indication
  11. VITAMIN B12 [Concomitant]
     Active Substance: CYANOCOBALAMIN
     Indication: Product used for unknown indication
  12. FOLIC ACID [Concomitant]
     Active Substance: FOLIC ACID
     Indication: Product used for unknown indication
  13. SARS-COV-2 VACCINE [Concomitant]
     Indication: Product used for unknown indication
     Dosage: UNK, UNKNOWN
     Dates: start: 20210128
  14. SARS-COV-2 VACCINE [Concomitant]
     Dosage: UNK, UNKNOWN
     Dates: start: 20210225

REACTIONS (10)
  - Malignant neoplasm progression [Fatal]
  - Pneumonia [Unknown]
  - Cataract [Unknown]
  - Hypertension [Unknown]
  - Blood lactate dehydrogenase increased [Unknown]
  - Constipation [Unknown]
  - Haemoglobin decreased [Unknown]
  - Aspartate aminotransferase increased [Unknown]
  - Alanine aminotransferase increased [Unknown]
  - Blood alkaline phosphatase increased [Unknown]

NARRATIVE: CASE EVENT DATE: 20221122
